FAERS Safety Report 11192731 (Version 1)
Quarter: 2015Q2

REPORT INFORMATION
  Report Type: Spontaneous
  Country: US (occurrence: None)
  Receive Date: 20150612
  Receipt Date: 20150612
  Transmission Date: 20150821
  Serious: Yes (Hospitalization)
  Sender: FDA-Public Use
  Company Number: 2015JUB00160

PATIENT
  Age: 24 Year
  Sex: Female

DRUGS (3)
  1. LAMOTRIGINE (LAMOTRIGINE) UNKNOWN [Suspect]
     Active Substance: LAMOTRIGINE
     Route: 048
  2. COCAINE (COCAINE) [Suspect]
     Active Substance: COCAINE
  3. ARIPIPRAZOLE (ARIPIPRAZOLE) [Suspect]
     Active Substance: ARIPIPRAZOLE
     Route: 048

REACTIONS (3)
  - Serotonin syndrome [None]
  - Intentional overdose [None]
  - Drug interaction [None]
